FAERS Safety Report 12541414 (Version 3)
Quarter: 2017Q3

REPORT INFORMATION
  Report Type: Report from Study
  Country: PL (occurrence: PL)
  Receive Date: 20160708
  Receipt Date: 20170728
  Transmission Date: 20171127
  Serious: Yes (Hospitalization)
  Sender: FDA-Public Use
  Company Number: PHHO2011PL023553

PATIENT
  Age: 70 Year
  Sex: Female
  Weight: 77.5 kg

DRUGS (3)
  1. OFATUMUMAB [Suspect]
     Active Substance: OFATUMUMAB
     Indication: CHRONIC LYMPHOCYTIC LEUKAEMIA
     Dosage: 1000 MG, CYCLIC
     Route: 042
     Dates: start: 20110324, end: 20111115
  2. CHLORAMBUCIL [Suspect]
     Active Substance: CHLORAMBUCIL
     Indication: CHRONIC LYMPHOCYTIC LEUKAEMIA
     Dosage: 10 MG/M2, CYCLIC
     Route: 048
     Dates: start: 20110324, end: 20111116
  3. ESSENTIALE FORTE [Concomitant]
     Indication: HEPATIC FUNCTION ABNORMAL
     Dosage: 600 MG, TID
     Route: 048
     Dates: start: 20111103

REACTIONS (1)
  - Hepatic enzyme increased [Recovered/Resolved]

NARRATIVE: CASE EVENT DATE: 20111102
